FAERS Safety Report 25864451 (Version 2)
Quarter: 2025Q4

REPORT INFORMATION
  Report Type: Spontaneous
  Country: US (occurrence: US)
  Receive Date: 20250930
  Receipt Date: 20251228
  Transmission Date: 20260117
  Serious: Yes (Hospitalization, Other)
  Sender: RECKITT BENCKISER
  Company Number: US-INDIVIOR US-INDV-152178-2024

PATIENT

DRUGS (39)
  1. SUBOXONE [Suspect]
     Active Substance: BUPRENORPHINE HYDROCHLORIDE\NALOXONE HYDROCHLORIDE
     Indication: Drug use disorder
     Dosage: 8 MILLIGRAM, TID
     Route: 065
     Dates: start: 20170718
  2. SUBOXONE [Suspect]
     Active Substance: BUPRENORPHINE HYDROCHLORIDE\NALOXONE HYDROCHLORIDE
     Dosage: 8 MILLIGRAM, UNKNOWN
     Route: 065
     Dates: start: 202102, end: 2021
  3. SUBOXONE [Suspect]
     Active Substance: BUPRENORPHINE HYDROCHLORIDE\NALOXONE HYDROCHLORIDE
     Dosage: 8 MILLIGRAM, BID
     Route: 065
     Dates: start: 20210416, end: 2021
  4. SUBOXONE [Suspect]
     Active Substance: BUPRENORPHINE HYDROCHLORIDE\NALOXONE HYDROCHLORIDE
     Dosage: 12 MILLIGRAM, BID
     Route: 065
     Dates: start: 202105
  5. SUBOXONE [Suspect]
     Active Substance: BUPRENORPHINE HYDROCHLORIDE\NALOXONE HYDROCHLORIDE
     Dosage: 8 MILLIGRAM, BID
     Route: 060
  6. BUPRENORPHINE\NALOXONE [Suspect]
     Active Substance: BUPRENORPHINE\NALOXONE
     Indication: Drug use disorder
     Dosage: 8 MILLIGRAM, BID
     Route: 060
     Dates: start: 20210802
  7. BUPRENORPHINE\NALOXONE [Suspect]
     Active Substance: BUPRENORPHINE\NALOXONE
     Indication: Drug use disorder
     Dosage: 8 MILLIGRAM, UNKNOWN
     Route: 060
     Dates: start: 20191202
  8. BUPRENORPHINE\NALOXONE [Suspect]
     Active Substance: BUPRENORPHINE\NALOXONE
     Dosage: 8 MILLIGRAM, BID
     Route: 060
     Dates: start: 202105
  9. ZUBSOLV [Suspect]
     Active Substance: BUPRENORPHINE HYDROCHLORIDE\NALOXONE HYDROCHLORIDE
     Indication: Drug use disorder
     Dosage: 5.7 MILLIGRAM, TID
     Route: 060
     Dates: start: 20180320
  10. BUDESONIDE\FORMOTEROL [Concomitant]
     Active Substance: BUDESONIDE\FORMOTEROL
     Indication: Product used for unknown indication
     Dosage: 2 PUFFS BID
  11. DEPAKOTE [Concomitant]
     Active Substance: DIVALPROEX SODIUM
     Indication: Product used for unknown indication
     Dosage: 250 MILLIGRAM, QD
     Route: 048
  12. FLONASE ALLERGY RELIEF [Concomitant]
     Active Substance: FLUTICASONE PROPIONATE
     Indication: Product used for unknown indication
     Dosage: 50 MICROGRAM, QD
     Route: 045
  13. GABAPENTIN [Concomitant]
     Active Substance: GABAPENTIN
     Indication: Product used for unknown indication
     Dosage: 900 MILLIGRAM, TID
     Route: 048
  14. LORATADINE [Concomitant]
     Active Substance: LORATADINE
     Indication: Product used for unknown indication
     Dosage: 10 MILLIGRAM, QD
     Route: 048
  15. MONTELUKAST [Concomitant]
     Active Substance: MONTELUKAST
     Indication: Product used for unknown indication
     Dosage: 10 MILLIGRAM, QD
     Route: 048
  16. NARCAN [Concomitant]
     Active Substance: NALOXONE HYDROCHLORIDE
     Indication: Product used for unknown indication
     Dosage: 4 MILLIGRAM, PRN
     Route: 045
  17. WELLBUTRIN [Concomitant]
     Active Substance: BUPROPION HYDROCHLORIDE
     Indication: Product used for unknown indication
     Dosage: 150 MILLIGRAM, QD
     Route: 048
  18. TERBINAFINE [Concomitant]
     Active Substance: TERBINAFINE
     Indication: Product used for unknown indication
     Dosage: 250 MILLIGRAM, QD
     Route: 048
  19. ZYPREXA [Concomitant]
     Active Substance: OLANZAPINE
     Indication: Product used for unknown indication
     Dosage: 20 MILLIGRAM, QHS
     Route: 048
  20. DESYREL [Concomitant]
     Active Substance: TRAZODONE HYDROCHLORIDE
     Indication: Product used for unknown indication
     Dosage: 50 MILLIGRAM, UNKNOWN
     Route: 065
  21. ZITHROMAX [Concomitant]
     Active Substance: AZITHROMYCIN DIHYDRATE
     Indication: Product used for unknown indication
     Dosage: 250 MILLIGRAM, UNKNOWN
     Route: 065
  22. TESSALON [Concomitant]
     Active Substance: BENZONATATE
     Indication: Cough
     Dosage: 100 MILLIGRAM, TID
     Route: 048
  23. LASIX [Concomitant]
     Active Substance: FUROSEMIDE
     Indication: Product used for unknown indication
     Dosage: 20 MILLIGRAM, QD
     Route: 042
  24. ACETAMINOPHEN [Concomitant]
     Active Substance: ACETAMINOPHEN
     Indication: Product used for unknown indication
     Dosage: 650 MILLIGRAM, Q6H
     Route: 048
  25. ZOFRAN [Concomitant]
     Active Substance: ONDANSETRON HYDROCHLORIDE
     Indication: Product used for unknown indication
     Dosage: 4 MILLIGRAM, Q6H
     Route: 042
  26. PROZAC [Concomitant]
     Active Substance: FLUOXETINE HYDROCHLORIDE
     Indication: Product used for unknown indication
     Dosage: 20 MILLIGRAM, QAM
     Route: 065
  27. HYDROXYZINE [Concomitant]
     Active Substance: HYDROXYZINE HYDROCHLORIDE
     Indication: Product used for unknown indication
     Dosage: 25 MILLIGRAM, PRN
     Route: 065
  28. TRAZODONE [Concomitant]
     Active Substance: TRAZODONE HYDROCHLORIDE
     Indication: Product used for unknown indication
     Dosage: 50 MILLIGRAM, PRN
     Route: 065
  29. FLUOXETINE HYDROCHLORIDE [Concomitant]
     Active Substance: FLUOXETINE HYDROCHLORIDE
     Indication: Anxiety
     Dosage: 20 MILLIGRAM, QAM
     Route: 048
     Dates: start: 20210408
  30. FLUOXETINE HYDROCHLORIDE [Concomitant]
     Active Substance: FLUOXETINE HYDROCHLORIDE
     Indication: Depression
  31. DIVALPROEX SODIUM ER [Concomitant]
     Active Substance: DIVALPROEX SODIUM
     Indication: Bipolar disorder
     Dosage: 1000 MILLIGRAM, HS
     Route: 048
     Dates: start: 20210407
  32. OLANZAPINE [Concomitant]
     Active Substance: OLANZAPINE
     Indication: Bipolar disorder
     Dosage: 10 MILLIGRAM, HS
     Route: 048
     Dates: start: 20210407
  33. FOLIC ACID [Concomitant]
     Active Substance: FOLIC ACID
     Indication: Product used for unknown indication
     Dosage: 1 MILLIGRAM, QAM
     Route: 048
     Dates: start: 20210408
  34. THIAMINE HYDROCHLORIDE [Concomitant]
     Active Substance: THIAMINE HYDROCHLORIDE
     Indication: Product used for unknown indication
     Dosage: 100 MILLIGRAM, QAM
     Route: 048
     Dates: start: 20210408
  35. MELATONIN [Concomitant]
     Active Substance: MELATONIN
     Indication: Insomnia
     Dosage: 3 MILLIGRAM, HS
     Route: 048
     Dates: start: 20210408
  36. PHILLIPS ORIGINAL MILK OF MAGNESIA [Concomitant]
     Active Substance: MAGNESIUM HYDROXIDE
     Indication: Constipation
     Dosage: 2400 MILLIGRAM, QD
     Route: 048
     Dates: start: 20210407
  37. COLACE [Concomitant]
     Active Substance: DOCUSATE SODIUM
     Indication: Constipation
     Dosage: 100 MILLIGRAM, PRN
     Route: 048
     Dates: start: 20210407
  38. WELLBUTRIN XL [Concomitant]
     Active Substance: BUPROPION HYDROCHLORIDE
     Indication: Affective disorder
     Dosage: 150 MILLIGRAM, QAM
     Route: 048
     Dates: start: 20210409
  39. NEXIUM [Concomitant]
     Active Substance: ESOMEPRAZOLE MAGNESIUM
     Indication: Product used for unknown indication
     Dosage: 20 MILLIGRAM, QAM
     Route: 048
     Dates: start: 20210414

REACTIONS (12)
  - Acute respiratory failure [Unknown]
  - Pulmonary embolism [Recovered/Resolved]
  - Pleural effusion [Unknown]
  - Deep vein thrombosis [Unknown]
  - Pneumonia [Unknown]
  - Chest pain [Unknown]
  - Renal cyst [Unknown]
  - Dental caries [Not Recovered/Not Resolved]
  - Tooth erosion [Not Recovered/Not Resolved]
  - Tooth fracture [Unknown]
  - Inappropriate schedule of product administration [Unknown]
  - Drug dependence [Unknown]

NARRATIVE: CASE EVENT DATE: 20170718
